FAERS Safety Report 11230019 (Version 1)
Quarter: 2015Q3

REPORT INFORMATION
  Report Type: Spontaneous
  Country: US (occurrence: US)
  Receive Date: 20150701
  Receipt Date: 20150701
  Transmission Date: 20151125
  Serious: Yes (Hospitalization, Other)
  Sender: FDA-Public Use
  Company Number: US-PAR PHARMACEUTICAL, INC-2015SCPR014080

PATIENT

DRUGS (3)
  1. METRONIDAZOLE. [Suspect]
     Active Substance: METRONIDAZOLE
     Indication: STAPHYLOCOCCAL BACTERAEMIA
     Dosage: UNK UNK, UNKNOWN
     Route: 065
  2. METRONIDAZOLE. [Suspect]
     Active Substance: METRONIDAZOLE
     Indication: CLOSTRIDIUM DIFFICILE INFECTION
  3. METRONIDAZOLE. [Suspect]
     Active Substance: METRONIDAZOLE
     Indication: DIARRHOEA

REACTIONS (9)
  - Vasogenic cerebral oedema [Recovering/Resolving]
  - Mental status changes [Recovering/Resolving]
  - Hemiplegia [Recovering/Resolving]
  - Leukoencephalopathy [Recovering/Resolving]
  - Toxicity to various agents [Recovering/Resolving]
  - Aphasia [Recovering/Resolving]
  - Gaze palsy [Recovering/Resolving]
  - Dizziness [Recovering/Resolving]
  - Confusional state [Recovering/Resolving]
